FAERS Safety Report 16843662 (Version 5)
Quarter: 2025Q2

REPORT INFORMATION
  Report Type: Spontaneous
  Country: GB (occurrence: GB)
  Receive Date: 20190924
  Receipt Date: 20250530
  Transmission Date: 20250716
  Serious: Yes (Other)
  Sender: TEVA
  Company Number: None

PATIENT
  Sex: Male

DRUGS (22)
  1. DIHYDROCODEINE [Suspect]
     Active Substance: DIHYDROCODEINE
     Indication: Pain
     Dosage: TWO TO BE TAKEN FOUR TIMES A DAY IF REQUIRED
     Route: 048
  2. DIHYDROCODEINE [Suspect]
     Active Substance: DIHYDROCODEINE
     Indication: Pain
     Dosage: AS NECESSARY,TWO TO BE TAKEN FOUR TIMES A DAY IF REQUIRED. RECEIVED 60 MG DOSE
     Route: 048
  3. DIHYDROCODEINE [Suspect]
     Active Substance: DIHYDROCODEINE
     Indication: Pain
     Dosage: TWO TO BE TAKEN FOUR TIMES A DAY IF REQUIRED, AS NECESSARY
     Route: 048
  4. DIHYDROCODEINE [Suspect]
     Active Substance: DIHYDROCODEINE
     Indication: Pain
     Dosage: 60 MILLIGRAM, QID, 240 MG, Q6H, FOUR TIMES DAILY. WITH OR JUST AFTER FOOD/MEAL
     Route: 048
  5. DIHYDROCODEINE [Suspect]
     Active Substance: DIHYDROCODEINE
     Indication: Pain
     Route: 048
  6. DIHYDROCODEINE [Suspect]
     Active Substance: DIHYDROCODEINE
     Indication: Pain
     Route: 048
  7. DIHYDROCODEINE [Suspect]
     Active Substance: DIHYDROCODEINE
     Indication: Pain
     Dosage: 240 MILLIGRAM, QID (FOUR TIMES DAILY. WITH OR JUST AFTER FOOD/MEAL)
     Route: 048
  8. MIRTAZAPINE [Suspect]
     Active Substance: MIRTAZAPINE
     Indication: Product used for unknown indication
     Dosage: NIGHT, HS/QD
     Route: 048
  9. ESCITALOPRAM [Suspect]
     Active Substance: ESCITALOPRAM OXALATE
     Indication: Product used for unknown indication
     Dosage: MORNING
     Route: 048
  10. FERROUS GLUCONATE [Suspect]
     Active Substance: FERROUS GLUCONATE
     Indication: Anaemia
     Dosage: 210 MILLIGRAM, QD (MORNING AND NIGHT), 210 MILLIGRAM, TWO TIMES A DAY, 840 MILLIGRAM, QD, MORNING AN
     Route: 048
  11. FERROUS GLUCONATE [Suspect]
     Active Substance: FERROUS GLUCONATE
     Indication: Anaemia
     Dosage: 840 MILLIGRAM, QD (420 MILLIGRAM, DAILY MORNING AND NIGHT)
     Route: 048
  12. FERROUS GLUCONATE [Suspect]
     Active Substance: FERROUS GLUCONATE
     Indication: Anaemia
     Dosage: 420MG, QD (210 MILLIGRAM, BID, (EVERY 12 HOURS DAILY, MORNING AND NIGHT), (MORNING AND N))
     Route: 048
  13. PROMETHAZINE [Suspect]
     Active Substance: PROMETHAZINE HYDROCHLORIDE
     Indication: Product used for unknown indication
     Dosage: AT NIGHT, PROMETHAZINE HYDROCHLORIDE/PROMETHAZINE
     Route: 048
  14. FOLIC ACID [Suspect]
     Active Substance: FOLIC ACID
     Indication: Folate deficiency
     Route: 065
  15. FOLIC ACID [Suspect]
     Active Substance: FOLIC ACID
     Indication: Folate deficiency
     Dosage: MORNING
     Route: 048
  16. OLANZAPINE [Suspect]
     Active Substance: OLANZAPINE
     Indication: Product used for unknown indication
     Dosage: 10 UNK, PRN
     Route: 048
  17. OLANZAPINE [Suspect]
     Active Substance: OLANZAPINE
     Indication: Product used for unknown indication
     Route: 048
  18. AZATHIOPRINE [Suspect]
     Active Substance: AZATHIOPRINE
     Indication: Colitis
     Dosage: MORNING, LUNCH AND TEA TIME (WITH OR JUST AFTER FOOD/MEAL))
     Route: 048
  19. AZATHIOPRINE [Suspect]
     Active Substance: AZATHIOPRINE
     Indication: Colitis
     Dosage: MORNING, LUNCH AND TEA TIME(WITH OR JUST AFTER FOOD/MEAL)
     Route: 048
  20. AZATHIOPRINE [Suspect]
     Active Substance: AZATHIOPRINE
     Indication: Colitis
     Dosage: WITH OR JUST AFTER FOOD/ MORNING, LUNCH AND TEA TIME (WITH OR JUST AFTER FOOD/ME
     Route: 048
  21. IRON [Suspect]
     Active Substance: IRON
     Indication: Anaemia
     Route: 048
  22. IRON [Suspect]
     Active Substance: IRON
     Indication: Anaemia
     Dosage: 420 MILLIGRAM, QD
     Route: 048

REACTIONS (3)
  - Seizure [Unknown]
  - Overdose [Unknown]
  - Autoscopy [Unknown]
